FAERS Safety Report 7331827-4 (Version None)
Quarter: 2011Q1

REPORT INFORMATION
  Report Type: 
  Country: None (occurrence: None)
  Receive Date: 20110304
  Receipt Date: 20110222
  Transmission Date: 20110831
  Serious: Yes (Other)
  Sender: FDA-Public Use
  Company Number: US-JNJFOC-20110208352

PATIENT

DRUGS (2)
  1. ROLAIDS SOFTCHEWS [Suspect]
     Indication: GASTROOESOPHAGEAL REFLUX DISEASE
     Dosage: USING FOR ^LAST 6 MONTHS OR SO^.
     Route: 065
  2. ROLAIDS SOFTCHEWS [Suspect]
     Indication: DYSPEPSIA
     Dosage: USING FOR ^LAST 6 MONTHS OR SO^.
     Route: 065

REACTIONS (6)
  - DYSPEPSIA [None]
  - OFF LABEL USE [None]
  - VOMITING [None]
  - IRON DEFICIENCY ANAEMIA [None]
  - PRODUCT QUALITY ISSUE [None]
  - GASTROOESOPHAGEAL REFLUX DISEASE [None]
